FAERS Safety Report 12055588 (Version 1)
Quarter: 2016Q1

REPORT INFORMATION
  Report Type: Report from Study
  Country: US (occurrence: US)
  Receive Date: 20160209
  Receipt Date: 20160209
  Transmission Date: 20160526
  Serious: No
  Sender: FDA-Public Use
  Company Number: US-ABBVIE-15P-163-1510220-00

PATIENT
  Sex: Female

DRUGS (1)
  1. HUMIRA [Suspect]
     Active Substance: ADALIMUMAB
     Indication: RHEUMATOID ARTHRITIS
     Route: 058
     Dates: start: 20150724

REACTIONS (6)
  - Skin hypertrophy [Unknown]
  - Fatigue [Unknown]
  - Pruritus [Unknown]
  - Weight increased [Unknown]
  - Dry skin [Unknown]
  - Ear pain [Unknown]

NARRATIVE: CASE EVENT DATE: 2015
